FAERS Safety Report 23446006 (Version 2)
Quarter: 2024Q1

REPORT INFORMATION
  Report Type: Spontaneous
  Country: US (occurrence: US)
  Receive Date: 20240126
  Receipt Date: 20240210
  Transmission Date: 20240410
  Serious: No
  Sender: FDA-Public Use
  Company Number: CID000000000043021

PATIENT
  Sex: Male

DRUGS (3)
  1. AUSTEDO [Suspect]
     Active Substance: DEUTETRABENAZINE
     Indication: Tardive dyskinesia
     Route: 065
  2. BOTOX [Concomitant]
     Active Substance: ONABOTULINUMTOXINA
  3. DIAZEPAM [Concomitant]
     Active Substance: DIAZEPAM

REACTIONS (7)
  - COVID-19 [Unknown]
  - Drug ineffective [Unknown]
  - Bruxism [Unknown]
  - Nasal congestion [Unknown]
  - Product dose omission issue [Unknown]
  - Pyrexia [Unknown]
  - Sinus disorder [Unknown]
